APPROVED DRUG PRODUCT: PHENYTOIN SODIUM
Active Ingredient: PHENYTOIN SODIUM
Strength: 50MG/ML
Dosage Form/Route: INJECTABLE;INJECTION
Application: A089900 | Product #001
Applicant: WARNER CHILCOTT DIV WARNER LAMBERT CO
Approved: Mar 30, 1990 | RLD: No | RS: No | Type: DISCN